FAERS Safety Report 6470338-5 (Version None)
Quarter: 2009Q4

REPORT INFORMATION
  Report Type: 
  Country: None (occurrence: None)
  Receive Date: 20091201
  Receipt Date: 20091117
  Transmission Date: 20100525
  Serious: Yes (Hospitalization, Disabling, Other)
  Sender: FDA-Public Use
  Company Number: DSJ-2009-15422

PATIENT
  Age: 73 Year
  Sex: Female
  Weight: 52.2 kg

DRUGS (10)
  1. OLMESARTAN MEDOXOMIL [Suspect]
     Indication: HYPERTENSION
     Dosage: 20 MG (20 MG,L IN 1 D),PER ORAL; 40 MG (20 MG,2 IN 1 D),PER ORAL
     Route: 048
     Dates: start: 20090123, end: 20090208
  2. OLMESARTAN MEDOXOMIL [Suspect]
     Indication: HYPERTENSION
     Dosage: 20 MG (20 MG,L IN 1 D),PER ORAL; 40 MG (20 MG,2 IN 1 D),PER ORAL
     Route: 048
     Dates: start: 20090209, end: 20090302
  3. ZYLORIC (ALLOPURINOL) (TABLET) (ALLOPURINOL) [Suspect]
     Indication: HYPERURICAEMIA
     Dosage: 100 MG (100 MG, 1 IN 1 D), PER ORAL
     Route: 048
     Dates: start: 20090126, end: 20090302
  4. EPOGEN [Suspect]
     Indication: NEPHROGENIC ANAEMIA
     Dosage: 12000 IU (12000 IU,1 IN 1 D),SUBCUTANEOUS; 6000 IU (6000 IU,1 IN 1 D),SUBCUTANEOUS
     Route: 058
     Dates: start: 20090209, end: 20090302
  5. ADALAT CC [Concomitant]
  6. ACETYLSALICYLIC ACID SRT [Concomitant]
  7. LASIX (FUROSEMIDE) (TABLET) (FUROSEMIDE) [Concomitant]
  8. PROTECADIN (LAFUTIDINE) (TABLET)(LAFUTIDINE) [Concomitant]
  9. CRESTOR (ROSUVASTATIN CALCIUM) (TABLET) (ROSUVASTATIN CALCIUM) [Concomitant]
  10. DIOVAN [Concomitant]

REACTIONS (7)
  - BLOOD PRESSURE INCREASED [None]
  - BLOOD URIC ACID INCREASED [None]
  - HEADACHE [None]
  - LOW DENSITY LIPOPROTEIN INCREASED [None]
  - NEPHROGENIC ANAEMIA [None]
  - PLATELET COUNT DECREASED [None]
  - TOXIC EPIDERMAL NECROLYSIS [None]
